FAERS Safety Report 5835560-7 (Version None)
Quarter: 2008Q3

REPORT INFORMATION
  Report Type: 
  Country: None (occurrence: None)
  Receive Date: 20080806
  Receipt Date: 20080729
  Transmission Date: 20090109
  Serious: Yes (Hospitalization)
  Sender: FDA-Public Use
  Company Number: B0531213A

PATIENT
  Age: 86 Year
  Sex: Female

DRUGS (9)
  1. DEROXAT [Suspect]
     Indication: DRUG USE FOR UNKNOWN INDICATION
     Dosage: 10MG PER DAY
     Route: 048
  2. PREVISCAN [Suspect]
     Dosage: .25UNIT PER DAY
     Route: 048
     Dates: start: 20070701, end: 20080406
  3. NEXIUM [Suspect]
     Indication: DRUG USE FOR UNKNOWN INDICATION
     Dosage: 40MG TWICE PER DAY
     Route: 048
  4. DIALGIREX [Suspect]
     Indication: DRUG USE FOR UNKNOWN INDICATION
     Dosage: 2UNIT TWICE PER DAY
     Route: 048
  5. ZOLPIDEM [Concomitant]
     Route: 048
  6. PROPRANOLOL [Concomitant]
     Route: 048
  7. XALATAN [Concomitant]
     Dosage: 1DROP PER DAY
     Route: 047
  8. FERROUS SULPHATE + ASCORBIC ACID [Concomitant]
     Dosage: 1UNIT TWICE PER DAY
     Route: 048
  9. DULCILARMES [Concomitant]
     Route: 047

REACTIONS (4)
  - DRUG INTERACTION [None]
  - INTERNATIONAL NORMALISED RATIO INCREASED [None]
  - OVERDOSE [None]
  - RECTAL HAEMORRHAGE [None]
